FAERS Safety Report 5781477-6 (Version None)
Quarter: 2008Q2

REPORT INFORMATION
  Report Type: 
  Country: None (occurrence: None)
  Receive Date: 20080623
  Receipt Date: 20070730
  Transmission Date: 20081010
  Serious: No
  Sender: FDA-Public Use
  Company Number: US-BAYER-US-2007-028290

PATIENT
  Age: 56 Year
  Sex: Male

DRUGS (5)
  1. ULTRAVIST (PHARMACY BULK) [Suspect]
     Indication: COMPUTERISED TOMOGRAM
     Dosage: TOTAL DAILY DOSE: 75 ML
     Route: 042
     Dates: start: 20070619, end: 20070619
  2. ATENOLOL [Concomitant]
  3. LISINOPRIL [Concomitant]
  4. METFORMIN [Concomitant]
  5. COUMADIN [Concomitant]

REACTIONS (7)
  - LYMPHADENOPATHY [None]
  - NASAL CONGESTION [None]
  - NAUSEA [None]
  - PULMONARY CONGESTION [None]
  - THROAT TIGHTNESS [None]
  - URTICARIA [None]
  - VOMITING [None]
